FAERS Safety Report 8182271 (Version 4)
Quarter: 2015Q3

REPORT INFORMATION
  Report Type: Spontaneous
  Country: US (occurrence: US)
  Receive Date: 20111014
  Receipt Date: 20150810
  Transmission Date: 20151125
  Serious: Yes (Hospitalization)
  Sender: FDA-Public Use
  Company Number: US-GILEAD-2011-0045246

PATIENT
  Age: 54 Year
  Sex: Female

DRUGS (1)
  1. LETAIRIS [Suspect]
     Active Substance: AMBRISENTAN
     Indication: PORTOPULMONARY HYPERTENSION
     Dosage: 5 MG, UNK
     Route: 048
     Dates: start: 20110909, end: 20111011

REACTIONS (5)
  - Cardiac failure congestive [Unknown]
  - Pyrexia [Unknown]
  - Lung disorder [Unknown]
  - Dyspnoea [Unknown]
  - Ascites [Unknown]

NARRATIVE: CASE EVENT DATE: 20110930
